FAERS Safety Report 7916837-8 (Version None)
Quarter: 2011Q4

REPORT INFORMATION
  Report Type: 
  Country: None (occurrence: None)
  Receive Date: 20111116
  Receipt Date: 20110406
  Transmission Date: 20120403
  Serious: Yes (Other)
  Sender: FDA-Public Use
  Company Number: US-BAYER-2011-031072

PATIENT
  Age: 68 Year
  Sex: Female

DRUGS (2)
  1. SORAFENIB (RAF KINASE INHIBITOR) [Suspect]
     Indication: HEPATIC NEOPLASM MALIGNANT
     Dosage: 400 MG, BID
     Route: 048
     Dates: start: 20110331, end: 20110411
  2. OXYCODONE HCL [Concomitant]
     Indication: RHEUMATOID ARTHRITIS

REACTIONS (9)
  - NEUROPATHY PERIPHERAL [None]
  - NAUSEA [None]
  - CHILLS [None]
  - BACK PAIN [None]
  - ABDOMINAL PAIN [None]
  - ABDOMINAL PAIN UPPER [None]
  - STOMATITIS [None]
  - FEELING COLD [None]
  - PHARYNGEAL OEDEMA [None]
